FAERS Safety Report 16148653 (Version 1)
Quarter: 2019Q2

REPORT INFORMATION
  Report Type: Spontaneous
  Country: GB (occurrence: GB)
  Receive Date: 20190402
  Receipt Date: 20190402
  Transmission Date: 20190711
  Serious: Yes (Other)
  Sender: FDA-Public Use
  Company Number: GB-TEVA-2019-GB-1031975

PATIENT
  Age: 76 Year
  Sex: Female

DRUGS (13)
  1. ALENDRONIC ACID [Concomitant]
     Active Substance: ALENDRONIC ACID
     Indication: OSTEOPOROSIS
     Dates: start: 20190221
  2. CLINDAMYCIN. [Concomitant]
     Active Substance: CLINDAMYCIN
     Dosage: 4 DOSAGE FORMS DAILY;
     Dates: start: 20181217, end: 20181224
  3. CIPROFLOXACIN. [Suspect]
     Active Substance: CIPROFLOXACIN
     Dates: start: 20190305
  4. ACETYLSALICYLIC ACID [Concomitant]
     Active Substance: ASPIRIN
     Dosage: 1 DOSAGE FORMS DAILY;
     Dates: start: 20181011
  5. FUROSEMIDE. [Concomitant]
     Active Substance: FUROSEMIDE
     Dosage: 1 DOSAGE FORMS DAILY; MORNING.
     Dates: start: 20181011
  6. MICONAZOLE. [Concomitant]
     Active Substance: MICONAZOLE
     Dosage: 2 DOSAGE FORMS DAILY; APPLY TO AFFECTED AREA FOR 7 DAYS.
     Dates: start: 20190116, end: 20190205
  7. LAXIDO [Concomitant]
     Active Substance: POLYETHYLENE GLYCOL 3350\POTASSIUM CHLORIDE\SODIUM BICARBONATE\SODIUM CHLORIDE
     Dosage: USE AS DIRECTED
     Dates: start: 20190221
  8. DOXYCYCLINE. [Concomitant]
     Active Substance: DOXYCYCLINE
     Indication: INFECTION
     Dosage: 1 DOSAGE FORMS DAILY; TWO ON FIRST DOSE
     Dates: start: 20181213, end: 20181220
  9. SPIRONOLACTONE. [Concomitant]
     Active Substance: SPIRONOLACTONE
     Dosage: 1 DOSAGE FORMS DAILY;
     Dates: start: 20181011
  10. LANSOPRAZOLE. [Concomitant]
     Active Substance: LANSOPRAZOLE
     Dosage: 1 DOSAGE FORMS DAILY;
     Dates: start: 20181011
  11. ADCAL (CALCIUM CARBONATE) [Concomitant]
     Active Substance: CALCIUM CARBONATE
     Dosage: 4 DOSAGE FORMS DAILY;
     Dates: start: 20190221
  12. PREDNISOLONE. [Concomitant]
     Active Substance: PREDNISOLONE
     Dosage: 3 DOSAGE FORMS DAILY;
     Dates: start: 20181011
  13. BISOPROLOL [Concomitant]
     Active Substance: BISOPROLOL
     Dosage: 1 DOSAGE FORMS DAILY;
     Dates: start: 20181011

REACTIONS (2)
  - Tendon disorder [Unknown]
  - Tendon discomfort [Recovering/Resolving]

NARRATIVE: CASE EVENT DATE: 20190305
